FAERS Safety Report 5711090-8 (Version None)
Quarter: 2008Q2

REPORT INFORMATION
  Report Type: 
  Country: None (occurrence: None)
  Receive Date: 20080421
  Receipt Date: 20080409
  Transmission Date: 20081010
  Serious: Yes (Hospitalization)
  Sender: FDA-Public Use
  Company Number: MX-AVENTIS-200813440GDDC

PATIENT
  Age: 74 Year
  Sex: Male
  Weight: 65 kg

DRUGS (4)
  1. LANTUS [Suspect]
     Route: 058
  2. GLINORBORAL [Concomitant]
     Indication: TYPE 2 DIABETES MELLITUS
     Dosage: DOSE QUANTITY: 2
     Route: 048
  3. CRESTOR [Concomitant]
     Route: 048
  4. ISCOVER [Concomitant]
     Route: 048

REACTIONS (6)
  - DIABETIC KETOACIDOSIS [None]
  - FATIGUE [None]
  - HYPERGLYCAEMIA [None]
  - INJECTION SITE PAIN [None]
  - LABORATORY TEST ABNORMAL [None]
  - SOMNOLENCE [None]
